FAERS Safety Report 24792949 (Version 1)
Quarter: 2024Q4

REPORT INFORMATION
  Report Type: Spontaneous
  Country: US (occurrence: None)
  Receive Date: 20241230
  Receipt Date: 20241230
  Transmission Date: 20250114
  Serious: Yes (Hospitalization)
  Sender: Public
  Company Number: None

PATIENT
  Sex: Female

DRUGS (11)
  1. HUMIRA [Suspect]
     Active Substance: ADALIMUMAB
     Indication: Psoriatic arthropathy
     Dosage: FREQ: INJECT 0.4 ML SUBCUTANEOUSLY EVERY 7 DAYS
     Route: 058
     Dates: start: 20210114
  2. ACYCLOVIR [Concomitant]
     Active Substance: ACYCLOVIR
  3. AMITRIPTYLINE [Concomitant]
     Active Substance: AMITRIPTYLINE
  4. BENZONATATE [Concomitant]
     Active Substance: BENZONATATE
  5. CELECOXIB [Suspect]
     Active Substance: CELECOXIB
  6. CLOBETASOL PROPIONATE [Concomitant]
     Active Substance: CLOBETASOL PROPIONATE
  7. CYCLOBENZAPRINE [Concomitant]
     Active Substance: CYCLOBENZAPRINE
  8. DEXEPIN HCL [Concomitant]
  9. ETODOLAC [Concomitant]
     Active Substance: ETODOLAC
  10. GABAPENTIN [Concomitant]
     Active Substance: GABAPENTIN
  11. HUMIRA [Concomitant]
     Active Substance: ADALIMUMAB

REACTIONS (1)
  - Hospitalisation [None]
